FAERS Safety Report 9257975 (Version 2)
Quarter: 2014Q1

REPORT INFORMATION
  Report Type: Spontaneous
  Country: US (occurrence: None)
  Receive Date: 20121212
  Receipt Date: 20130314
  Transmission Date: 20141002
  Serious: No
  Sender: FDA-Public Use
  Company Number: 1208USA007618

PATIENT
  Age: 72 Year
  Sex: Female

DRUGS (3)
  1. VICTRELIS (BOCEPREVIR) CAPSULE [Suspect]
     Indication: HEPATITIS C
     Dates: start: 20120722
  2. RIBASPHERE (RIBAVIRIN) [Concomitant]
     Dates: start: 20120623
  3. PEGASYS (PEGINTERFERON ALFA-2A) [Concomitant]

REACTIONS (7)
  - Haemoglobin decreased [None]
  - Cough [None]
  - Transfusion [None]
  - Asthenia [None]
  - Abdominal discomfort [None]
  - Cough [None]
  - Rash [None]
